FAERS Safety Report 4810005-4 (Version None)
Quarter: 2005Q4

REPORT INFORMATION
  Report Type: 
  Country: None (occurrence: None)
  Receive Date: 20051024
  Receipt Date: 20051024
  Transmission Date: 20060501
  Serious: Yes (Other)
  Sender: FDA-Public Use
  Company Number: None

PATIENT
  Age: 59 Year
  Sex: Male
  Weight: 99.7 kg

DRUGS (9)
  1. OPTIMARK [Suspect]
     Indication: CORONARY ARTERY DISEASE
     Dosage: 28 CC ONCE IV BOLUS
     Route: 040
     Dates: start: 20030905, end: 20030905
  2. OPTIMARK [Suspect]
     Indication: VENTRICULAR DYSFUNCTION
     Dosage: 28 CC ONCE IV BOLUS
     Route: 040
     Dates: start: 20030905, end: 20030905
  3. TOPROL-XL [Concomitant]
  4. ASPIRIN [Concomitant]
  5. PLAVIX [Concomitant]
  6. LIPITOR [Concomitant]
  7. ACTOS [Concomitant]
  8. GLUCOPHAGE [Concomitant]
  9. AMLODIPINE [Concomitant]

REACTIONS (9)
  - ARTERIAL THROMBOSIS LIMB [None]
  - DEEP VEIN THROMBOSIS [None]
  - HYPOAESTHESIA [None]
  - OEDEMA [None]
  - PAIN IN EXTREMITY [None]
  - PARAESTHESIA [None]
  - SUBCLAVIAN ARTERY THROMBOSIS [None]
  - SWELLING [None]
  - VENOUS THROMBOSIS [None]
